FAERS Safety Report 26204291 (Version 1)
Quarter: 2025Q4

REPORT INFORMATION
  Report Type: Report from Study
  Country: EU (occurrence: EU)
  Receive Date: 20251226
  Receipt Date: 20251226
  Transmission Date: 20260117
  Serious: Yes (Other)
  Sender: ROCHE
  Company Number: EU-ROCHE-10000461421

PATIENT

DRUGS (2)
  1. OBINUTUZUMAB [Suspect]
     Active Substance: OBINUTUZUMAB
     Indication: Nephropathy
  2. OFATUMUMAB [Suspect]
     Active Substance: OFATUMUMAB
     Indication: Nephropathy

REACTIONS (3)
  - Hypogammaglobulinaemia [Unknown]
  - Lymphopenia [Unknown]
  - Infusion related reaction [Recovered/Resolved]
